FAERS Safety Report 9354013 (Version 2)
Quarter: 2013Q2

REPORT INFORMATION
  Report Type: Spontaneous
  Country: US (occurrence: None)
  Receive Date: 20130613
  Receipt Date: 20130613
  Transmission Date: 20140414
  Serious: Yes (Hospitalization, Other)
  Sender: FDA-Public Use
  Company Number: DSU-2013-03536

PATIENT
  Age: 46 Year
  Sex: Female
  Weight: 117.94 kg

DRUGS (5)
  1. BENICAR HCT [Suspect]
     Indication: HYPERTENSION
     Dosage: 40/12/5 MG (QD), PER ORAL
     Route: 048
     Dates: start: 201301, end: 20130528
  2. BENICAR (OLMESARTAN MEDOXOMIL) (40 MILLIGRAM, TABLET) (OLMESARTAN MEDOXOMIL) [Suspect]
     Indication: HYPERTENSION
     Route: 048
     Dates: start: 20130602
  3. VICTOZA (LIRAGLUTIDE) (LIRAGLUTIDE) [Concomitant]
  4. GLUCOPHAGE (METFORMIN) (METFORMIN) [Concomitant]
  5. LANTUS (INSULIN GLARGINE) (INSULIN GLARGINE) [Concomitant]

REACTIONS (1)
  - Stevens-Johnson syndrome [None]
